FAERS Safety Report 6659740-6 (Version None)
Quarter: 2010Q1

REPORT INFORMATION
  Report Type: 
  Country: None (occurrence: None)
  Receive Date: 20100325
  Receipt Date: 20100311
  Transmission Date: 20100710
  Serious: Yes (Hospitalization)
  Sender: FDA-Public Use
  Company Number: 008302

PATIENT
  Sex: Female
  Weight: 76 kg

DRUGS (9)
  1. CERTOLIZUMAB PEGOL (CERTOLIZDMAB PEGOL) [Suspect]
     Indication: RHEUMATOID ARTHRITIS
     Dosage: SEE IMAGE
     Route: 058
     Dates: start: 20051122, end: 20060510
  2. CERTOLIZUMAB PEGOL (CERTOLIZDMAB PEGOL) [Suspect]
     Indication: RHEUMATOID ARTHRITIS
     Dosage: SEE IMAGE
     Route: 058
     Dates: start: 20060510, end: 20080408
  3. CERTOLIZUMAB PEGOL (CERTOLIZDMAB PEGOL) [Suspect]
     Indication: RHEUMATOID ARTHRITIS
     Dosage: SEE IMAGE
     Route: 058
     Dates: start: 20080422, end: 20100223
  4. CERTOLIZUMAB PEGOL (CERTOLIZDMAB PEGOL) [Suspect]
     Indication: RHEUMATOID ARTHRITIS
     Dosage: SEE IMAGE
     Route: 058
     Dates: start: 20100309
  5. METHOTREXATE [Concomitant]
  6. NIMESULIDE [Concomitant]
  7. BETAXOLOL [Concomitant]
  8. ISONIAZID [Concomitant]
  9. PYRIDOXINE HCL [Concomitant]

REACTIONS (1)
  - THROMBOSIS [None]
